FAERS Safety Report 5401464-7 (Version None)
Quarter: 2007Q3

REPORT INFORMATION
  Report Type: 
  Country: None (occurrence: None)
  Receive Date: 20070731
  Receipt Date: 20070719
  Transmission Date: 20080115
  Serious: Yes (Hospitalization)
  Sender: FDA-Public Use
  Company Number: JP-JNJFOC-20070102633

PATIENT
  Sex: Female
  Weight: 42 kg

DRUGS (16)
  1. REMICADE [Suspect]
     Route: 042
  2. REMICADE [Suspect]
     Route: 042
  3. REMICADE [Suspect]
     Route: 042
  4. REMICADE [Suspect]
     Route: 042
  5. REMICADE [Suspect]
     Route: 042
  6. REMICADE [Suspect]
     Route: 042
  7. REMICADE [Suspect]
     Indication: RHEUMATOID ARTHRITIS
     Route: 042
  8. METHOTREXATE SODIUM [Suspect]
     Route: 048
  9. METHOTREXATE SODIUM [Suspect]
     Route: 048
  10. METHOTREXATE SODIUM [Suspect]
     Indication: RHEUMATOID ARTHRITIS
     Route: 048
  11. ADRENAL HORMONE PREPARATION [Concomitant]
     Indication: RHEUMATOID ARTHRITIS
  12. LOBU [Concomitant]
     Indication: RHEUMATOID ARTHRITIS
  13. FOLIAMIN [Concomitant]
  14. ADRENAL HORMONE PREPARATION [Concomitant]
  15. PREDNISOLONE [Concomitant]
  16. MEROPEN [Concomitant]
     Indication: FUNGAL INFECTION

REACTIONS (3)
  - ANAEMIA [None]
  - BLOOD PRESSURE DECREASED [None]
  - CANDIDA PNEUMONIA [None]
